FAERS Safety Report 15805424 (Version 1)
Quarter: 2019Q1

REPORT INFORMATION
  Report Type: Report from Study
  Country: None (occurrence: CA)
  Receive Date: 20190110
  Receipt Date: 20190110
  Transmission Date: 20190417
  Serious: Yes (Other)
  Sender: FDA-Public Use
  Company Number: CA-INGENUS PHARMACEUTICALS NJ, LLC-ING201901-000002

PATIENT

DRUGS (4)
  1. CARISOPRODOL, ASPIRIN AND CODEINE PHOSPHATE [Suspect]
     Active Substance: ASPIRIN\CARISOPRODOL\CODEINE PHOSPHATE
     Dosage: TWICE DAILY
  2. CARISOPRODOL, ASPIRIN AND CODEINE PHOSPHATE [Suspect]
     Active Substance: ASPIRIN\CARISOPRODOL\CODEINE PHOSPHATE
     Dosage: DOSES GIVEN IN 2-H INTERVALS WITH 5 MG, 40 MG, 80 MG, AND 160 MG DOSES ADMINISTERED ON THE FIRST DAY
  3. MONTELUKAST [Concomitant]
     Active Substance: MONTELUKAST SODIUM
     Indication: BRONCHOSPASM
  4. BUDESONIDE. [Concomitant]
     Active Substance: BUDESONIDE
     Dosage: NEBULES

REACTIONS (1)
  - Asthma [Unknown]
